FAERS Safety Report 8651145 (Version 2)
Quarter: 2013Q4

REPORT INFORMATION
  Report Type: Spontaneous
  Country: US (occurrence: US)
  Receive Date: 20120705
  Receipt Date: 20131008
  Transmission Date: 20140711
  Serious: No
  Sender: FDA-Public Use
  Company Number: US-ASTRAZENECA-2012SE43070

PATIENT
  Age: 65 Year
  Sex: Male
  Weight: 56.7 kg

DRUGS (17)
  1. NEXIUM [Suspect]
     Indication: GASTROOESOPHAGEAL REFLUX DISEASE
     Route: 048
     Dates: start: 2010, end: 20130908
  2. LORTAB [Concomitant]
     Indication: PAIN
     Route: 048
  3. DILAUDID [Concomitant]
     Indication: PAIN
     Route: 048
     Dates: start: 2010
  4. DILAUDID [Concomitant]
     Indication: PAIN
     Route: 048
     Dates: start: 2010
  5. DILAUDID [Concomitant]
     Indication: PAIN
     Route: 048
  6. DIOVAN [Concomitant]
     Indication: CARDIAC DISORDER
     Dosage: 80/12 DAILY
     Route: 048
  7. CLONOPIN [Concomitant]
     Indication: ANXIETY
     Route: 048
  8. SPIRIVA [Concomitant]
     Indication: CHRONIC OBSTRUCTIVE PULMONARY DISEASE
     Dosage: PRN
     Route: 055
  9. PLAVIX [Concomitant]
     Indication: ANTICOAGULANT THERAPY
     Route: 048
  10. MUTAZAPINE [Concomitant]
  11. ALBUTEROL [Concomitant]
     Indication: CHRONIC OBSTRUCTIVE PULMONARY DISEASE
     Route: 055
  12. POTASSIUM [Concomitant]
     Indication: MINERAL SUPPLEMENTATION
     Route: 048
  13. LASIX [Concomitant]
     Indication: CARDIAC DISORDER
     Route: 048
  14. CARAFATE [Concomitant]
     Indication: GASTRIC ULCER
     Route: 048
     Dates: start: 1978
  15. FEOSOL [Concomitant]
     Indication: MINERAL SUPPLEMENTATION
     Route: 048
  16. NITROGLYCERIN SPRAY [Concomitant]
     Indication: CARDIAC DISORDER
     Route: 050
  17. METHOCERVAMAOL [Concomitant]

REACTIONS (2)
  - Cardiac disorder [Unknown]
  - Lung disorder [Unknown]
